FAERS Safety Report 5911616-5 (Version None)
Quarter: 2008Q4

REPORT INFORMATION
  Report Type: 
  Country: None (occurrence: None)
  Receive Date: 20081003
  Receipt Date: 20080918
  Transmission Date: 20090506
  Serious: Yes (Other)
  Sender: FDA-Public Use
  Company Number: ALK_0083_2006

PATIENT
  Sex: Female
  Weight: 68.9467 kg

DRUGS (3)
  1. VIVITROL [Suspect]
     Indication: ALCOHOLISM
     Dosage: (380 MG 1X/MONTH INTRAMUSCULAR)
     Route: 030
     Dates: start: 20061010, end: 20061010
  2. SYNTHROID [Concomitant]
  3. CYMBALTA [Concomitant]

REACTIONS (23)
  - ABSCESS [None]
  - ARTHRALGIA [None]
  - ASTHMA [None]
  - BLOOD CHLORIDE DECREASED [None]
  - BLOOD GLUCOSE INCREASED [None]
  - BLOOD PRESSURE INCREASED [None]
  - BLOOD SODIUM DECREASED [None]
  - BREAST MASS [None]
  - EAR PAIN [None]
  - ECCHYMOSIS [None]
  - INJECTION SITE MASS [None]
  - INJECTION SITE PAIN [None]
  - INJECTION SITE REACTION [None]
  - MASS [None]
  - NASAL CONGESTION [None]
  - NECROSIS [None]
  - NECROTISING PANNICULITIS [None]
  - OROPHARYNGEAL PAIN [None]
  - PLATELET COUNT INCREASED [None]
  - PLEURAL DISORDER [None]
  - REFUSAL OF TREATMENT BY PATIENT [None]
  - SEROMA [None]
  - SINUS HEADACHE [None]
